FAERS Safety Report 9698314 (Version 1)
Quarter: 2013Q4

REPORT INFORMATION
  Report Type: Spontaneous
  Country: US (occurrence: None)
  Receive Date: 20131115
  Receipt Date: 20131115
  Transmission Date: 20140711
  Serious: Yes (Other)
  Sender: FDA-Public Use
  Company Number: 001624734A

PATIENT
  Age: 77 Year
  Sex: Female

DRUGS (3)
  1. MB* ANTIOXDANT DAY CREME SPF 20 [Suspect]
     Dosage: ONCE DAILY TOPICAL
     Dates: start: 20131018, end: 20131025
  2. MB* SKIN BRIGHTENING DOCOLLETE+NECK TREATMENT SFF 15 [Suspect]
     Dosage: ONCE DAILY TOPICAL?
     Dates: start: 20131018, end: 20131025
  3. MEANINGFUL BEAUTY VITAMIN SUPPLEMENTS [Concomitant]

REACTIONS (2)
  - Lip swelling [None]
  - Swelling face [None]
